FAERS Safety Report 17501404 (Version 1)
Quarter: 2020Q1

REPORT INFORMATION
  Report Type: Report from Study
  Country: RO (occurrence: RO)
  Receive Date: 20200305
  Receipt Date: 20200305
  Transmission Date: 20200409
  Serious: Yes (Other)
  Sender: FDA-Public Use
  Company Number: RO-MYLANLABS-2020M1023375

PATIENT
  Age: 47 Year
  Sex: Male

DRUGS (3)
  1. PRADAXA [Suspect]
     Active Substance: DABIGATRAN ETEXILATE MESYLATE
     Indication: VENOUS THROMBOSIS LIMB
     Dosage: 300 MILLIGRAM, QD
     Route: 065
  2. LAMIVUDINE/ZIDOVUDINE [Suspect]
     Active Substance: LAMIVUDINE\ZIDOVUDINE
     Indication: HIV INFECTION
     Dosage: UNK
     Route: 065
     Dates: start: 2002, end: 201502
  3. ABACAVIR. [Concomitant]
     Active Substance: ABACAVIR
     Indication: HIV INFECTION
     Dosage: UNK
     Route: 065
     Dates: start: 201502

REACTIONS (6)
  - Lipodystrophy acquired [Unknown]
  - Lactic acidosis [Unknown]
  - Off label use [Unknown]
  - Mitral valve incompetence [Unknown]
  - Hypercoagulation [Unknown]
  - Acute myocardial infarction [Unknown]
